FAERS Safety Report 9303470 (Version 1)
Quarter: 2013Q2

REPORT INFORMATION
  Report Type: Spontaneous
  Country: US (occurrence: None)
  Receive Date: 20130516
  Receipt Date: 20130516
  Transmission Date: 20140414
  Serious: Yes (Other)
  Sender: FDA-Public Use
  Company Number: FK201301525

PATIENT
  Age: 79 Year
  Sex: Female

DRUGS (5)
  1. VANCOMYCIN [Suspect]
     Indication: ELECTIVE SURGERY
     Dosage: PATIENT RECEIVED 3 DOSES
  2. CIPROFLOXACIN [Suspect]
     Indication: PROPHYLAXIS URINARY TRACT INFECTION
  3. ATORVASTATIN (ATORVASTATIN) [Suspect]
     Indication: PRODUCT USED FOR UNKNOWN INDICATION
  4. SPIRONOLACTONE (SPIRONOLACTONE) [Suspect]
     Indication: PRODUCT USED FOR UNKNOWN INDICATION
  5. TORADOL [Suspect]
     Indication: PRODUCT USED FOR UNKNOWN INDICATION

REACTIONS (2)
  - Cerebrovascular accident [None]
  - Drug reaction with eosinophilia and systemic symptoms [None]
